FAERS Safety Report 8112512-8 (Version None)
Quarter: 2012Q1

REPORT INFORMATION
  Report Type: 
  Country: None (occurrence: None)
  Receive Date: 20120131
  Receipt Date: 20120118
  Transmission Date: 20120608
  Serious: Yes (Hospitalization, Other)
  Sender: FDA-Public Use
  Company Number: 2012MA000848

PATIENT
  Sex: Female
  Weight: 83.4619 kg

DRUGS (14)
  1. ATENOLOL [Concomitant]
  2. DIGOXIN [Suspect]
     Dosage: 0.25 MG; QD; PO
     Route: 048
     Dates: start: 20070521, end: 20070728
  3. ERYTHROMYCIN [Concomitant]
  4. TOPROL-XL [Concomitant]
  5. M.V.I. [Concomitant]
  6. GUAIFENESIN [Concomitant]
  7. CIPROFLOXACIN [Concomitant]
  8. ASPIRIN [Concomitant]
  9. GLUCOPHAGE [Concomitant]
  10. PROTONIX [Concomitant]
  11. LASIX [Concomitant]
  12. COUMADIN [Concomitant]
  13. POTASSIUM [Concomitant]
  14. CARVEDILOL [Concomitant]

REACTIONS (50)
  - ATRIAL FIBRILLATION [None]
  - HYPONATRAEMIA [None]
  - ATRIAL FLUTTER [None]
  - DISORIENTATION [None]
  - MYOCARDIAL ISCHAEMIA [None]
  - ORTHOPNOEA [None]
  - DEHYDRATION [None]
  - RENAL FAILURE ACUTE [None]
  - VOMITING [None]
  - CARDIAC MURMUR [None]
  - URINARY TRACT INFECTION [None]
  - ELECTROCARDIOGRAM ST SEGMENT ABNORMAL [None]
  - PULMONARY ARTERIAL WEDGE PRESSURE DECREASED [None]
  - ATELECTASIS [None]
  - DYSPNOEA EXERTIONAL [None]
  - TOXICITY TO VARIOUS AGENTS [None]
  - MUSCLE SPASMS [None]
  - BLOOD PRESSURE INCREASED [None]
  - LEFT ATRIAL DILATATION [None]
  - CULTURE URINE POSITIVE [None]
  - REFUSAL OF TREATMENT BY PATIENT [None]
  - SICK SINUS SYNDROME [None]
  - THROMBOCYTOPENIA [None]
  - HAEMORRHOIDS [None]
  - LABORATORY TEST ABNORMAL [None]
  - OEDEMA PERIPHERAL [None]
  - CARDIAC FAILURE CONGESTIVE [None]
  - CHOLELITHIASIS [None]
  - HYPOCHLORAEMIA [None]
  - ATRIAL TACHYCARDIA [None]
  - MITRAL VALVE INCOMPETENCE [None]
  - PNEUMONITIS [None]
  - TYPE 2 DIABETES MELLITUS [None]
  - PAIN IN EXTREMITY [None]
  - PULMONARY VALVE INCOMPETENCE [None]
  - ATRIOVENTRICULAR BLOCK SECOND DEGREE [None]
  - DELIRIUM [None]
  - MEMORY IMPAIRMENT [None]
  - DEMENTIA [None]
  - CEREBROVASCULAR ACCIDENT [None]
  - DYSPNOEA PAROXYSMAL NOCTURNAL [None]
  - FATIGUE [None]
  - NAUSEA [None]
  - KLEBSIELLA INFECTION [None]
  - CARDIOMYOPATHY [None]
  - COUGH [None]
  - AZOTAEMIA [None]
  - HYPOAESTHESIA [None]
  - TRICUSPID VALVE INCOMPETENCE [None]
  - BLOOD POTASSIUM INCREASED [None]
